FAERS Safety Report 6583190-4 (Version None)
Quarter: 2010Q1

REPORT INFORMATION
  Report Type: 
  Country: None (occurrence: None)
  Receive Date: 20100216
  Receipt Date: 20100128
  Transmission Date: 20100710
  Serious: Yes (Disabling)
  Sender: FDA-Public Use
  Company Number: DE-ROCHE-685474

PATIENT
  Age: 67 Year
  Sex: Female

DRUGS (5)
  1. TOCILIZUMAB [Suspect]
     Indication: RHEUMATOID ARTHRITIS
     Dosage: 5TH INFUSION ON 24 NOV 2009
     Route: 042
     Dates: start: 20090701
  2. DICLOFENAC [Concomitant]
     Indication: RHEUMATOID ARTHRITIS
  3. NOVALGIN [Concomitant]
     Indication: RHEUMATOID ARTHRITIS
  4. PREDNISOLON [Concomitant]
     Indication: RHEUMATOID ARTHRITIS
     Dates: end: 20091116
  5. PREDNISOLON [Concomitant]
     Dates: start: 20091117

REACTIONS (2)
  - PAIN IN JAW [None]
  - TOOTHACHE [None]
